FAERS Safety Report 4471754-3 (Version None)
Quarter: 2004Q4

REPORT INFORMATION
  Report Type: 
  Country: None (occurrence: None)
  Receive Date: 20041006
  Receipt Date: 20040922
  Transmission Date: 20050328
  Serious: Yes (Other)
  Sender: FDA-Public Use
  Company Number: 2004234534IN

PATIENT
  Sex: Male
  Weight: 60 kg

DRUGS (1)
  1. SOLU-MEDROL [Suspect]
     Dosage: 1 G, BID, IV
     Route: 042
     Dates: start: 20040914, end: 20040914

REACTIONS (3)
  - DYSPNOEA [None]
  - PALPITATIONS [None]
  - PRURITUS GENERALISED [None]
